FAERS Safety Report 15214873 (Version 1)
Quarter: 2018Q3

REPORT INFORMATION
  Report Type: Spontaneous
  Country: US (occurrence: US)
  Receive Date: 20180730
  Receipt Date: 20180730
  Transmission Date: 20181010
  Serious: Yes (Other)
  Sender: FDA-Public Use
  Company Number: US-PFIZER INC-2018299604

PATIENT
  Age: 74 Year
  Sex: Female
  Weight: 89.81 kg

DRUGS (3)
  1. ANASTROZOLE. [Concomitant]
     Active Substance: ANASTROZOLE
  2. AMLODIPINE [Concomitant]
     Active Substance: AMLODIPINE BESYLATE
     Dosage: 10 MG
  3. IBRANCE [Suspect]
     Active Substance: PALBOCICLIB
     Indication: BREAST CANCER
     Dosage: 125 MG, CYCLIC (ONE CAPSULE A DAY FOR 21 DAYS AND THEN OFF FOR 7 DAYS,)
     Route: 048
     Dates: end: 2018

REACTIONS (1)
  - Renal impairment [Unknown]
